FAERS Safety Report 5988489-8 (Version None)
Quarter: 2008Q4

REPORT INFORMATION
  Report Type: 
  Country: None (occurrence: None)
  Receive Date: 20081210
  Receipt Date: 20081208
  Transmission Date: 20090506
  Serious: Yes (Other)
  Sender: FDA-Public Use
  Company Number: SE-RB-006530-08

PATIENT
  Age: 31 Year
  Sex: Male

DRUGS (3)
  1. SUBUTEX [Suspect]
     Route: 060
     Dates: start: 20070101
  2. SUBUTEX [Suspect]
     Route: 060
     Dates: start: 20060801, end: 20070101
  3. SUBOXONE [Suspect]
     Dates: start: 20070101, end: 20070101

REACTIONS (5)
  - DEPRESSION [None]
  - HEADACHE [None]
  - NAUSEA [None]
  - SUICIDAL IDEATION [None]
  - WITHDRAWAL SYNDROME [None]
